FAERS Safety Report 25672708 (Version 1)
Quarter: 2025Q3

REPORT INFORMATION
  Report Type: Spontaneous
  Country: US (occurrence: US)
  Receive Date: 20250812
  Receipt Date: 20250812
  Transmission Date: 20251020
  Serious: No
  Sender: SANOFI AVENTIS
  Company Number: US-SA-2025SA235448

PATIENT
  Sex: Male
  Weight: 23.18 kg

DRUGS (1)
  1. DUPIXENT [Suspect]
     Active Substance: DUPILUMAB
     Dosage: 300MG, Q4W
     Route: 058

REACTIONS (2)
  - Pain in extremity [Recovering/Resolving]
  - Weight increased [Recovering/Resolving]
